FAERS Safety Report 20467231 (Version 1)
Quarter: 2022Q1

REPORT INFORMATION
  Report Type: Spontaneous
  Country: US (occurrence: US)
  Receive Date: 20220214
  Receipt Date: 20220214
  Transmission Date: 20220424
  Serious: No
  Sender: FDA-Public Use
  Company Number: US-drreddys-SPO/USA/22/0146697

PATIENT
  Age: 15 Year

DRUGS (1)
  1. ZENATANE [Suspect]
     Active Substance: ISOTRETINOIN
     Indication: Product used for unknown indication
     Dosage: RMA ISSUE DATE: 01 NOVEMBER 2021 04:22:58 PM, 08 DECEMBER 2021 10:54:05 AM, 08 JANUARY 2022 01:39:46

REACTIONS (2)
  - Arthralgia [Unknown]
  - Educational problem [Unknown]
